FAERS Safety Report 5223686-0 (Version None)
Quarter: 2007Q1

REPORT INFORMATION
  Report Type: 
  Country: None (occurrence: None)
  Receive Date: 20070130
  Receipt Date: 20070118
  Transmission Date: 20070707
  Serious: Yes (Death)
  Sender: FDA-Public Use
  Company Number: CH-JNJFOC-20070106587

PATIENT
  Age: 72 Year
  Sex: Female

DRUGS (18)
  1. TRAMADOL RETARD [Suspect]
     Route: 048
  2. TRAMADOL RETARD [Suspect]
     Route: 048
  3. TRAMADOL RETARD [Suspect]
     Indication: PAIN
     Route: 048
  4. TRAMADOL HCL [Suspect]
     Indication: DRUG USE FOR UNKNOWN INDICATION
     Route: 048
  5. FLUCTINE [Interacting]
     Indication: DEPRESSION
     Route: 048
  6. DAFALGAN [Concomitant]
     Route: 048
  7. ASPIRIN [Concomitant]
     Route: 048
  8. PLAVIX [Concomitant]
     Route: 048
  9. CLEXANE [Concomitant]
     Route: 048
  10. ATORVASTATIN CALCIUM [Concomitant]
     Route: 048
  11. BELOC ZOK [Concomitant]
     Route: 048
  12. COZAAR [Concomitant]
     Route: 048
  13. LASIX [Concomitant]
     Route: 065
  14. ALDACTONE [Concomitant]
     Route: 065
  15. PHYSIOTENS [Concomitant]
     Route: 065
  16. CORVATON [Concomitant]
     Route: 065
  17. NEXIUM [Concomitant]
     Route: 065
  18. INSULIN [Concomitant]
     Route: 065

REACTIONS (5)
  - CARDIO-RESPIRATORY ARREST [None]
  - DRUG INTERACTION [None]
  - NAUSEA [None]
  - SUDDEN DEATH [None]
  - VENTRICULAR FIBRILLATION [None]
